FAERS Safety Report 7832283-X (Version None)
Quarter: 2011Q4

REPORT INFORMATION
  Report Type: 
  Country: None (occurrence: None)
  Receive Date: 20111022
  Receipt Date: 20111011
  Transmission Date: 20120403
  Serious: Yes (Hospitalization)
  Sender: FDA-Public Use
  Company Number: US-BAYER-201040036NA

PATIENT
  Age: 30 Year
  Sex: Female

DRUGS (8)
  1. EFFEXOR XR [Concomitant]
     Indication: DEPRESSION
     Dosage: 150 MG, UNK
     Route: 048
     Dates: start: 20060301, end: 20060701
  2. YAZ [Suspect]
     Indication: CONTRACEPTION
     Dosage: UNK
     Dates: start: 20070201, end: 20080701
  3. TRAZODONE HYDROCHLORIDE [Concomitant]
     Indication: DEPRESSION
     Dosage: 50 MG, UNK
     Dates: start: 20050201, end: 20060701
  4. LAMICTAL [Concomitant]
     Indication: AFFECTIVE DISORDER
     Dosage: UNK
     Dates: start: 20060101, end: 20080401
  5. YASMIN [Suspect]
     Indication: ACNE
     Dosage: UNK
     Route: 048
     Dates: start: 20020801, end: 20060701
  6. YAZ [Suspect]
     Indication: ACNE
     Dosage: UNK
     Dates: start: 20060801, end: 20060901
  7. YASMIN [Suspect]
     Indication: CONTRACEPTION
     Dosage: UNK
     Dates: start: 20061001, end: 20070101
  8. ZANTAC [Concomitant]

REACTIONS (2)
  - CHOLECYSTITIS [None]
  - PAIN [None]
